FAERS Safety Report 5025151-2 (Version None)
Quarter: 2006Q2

REPORT INFORMATION
  Report Type: 
  Country: None (occurrence: None)
  Receive Date: 20060609
  Receipt Date: 20060609
  Transmission Date: 20061013
  Serious: Yes (Life-Threatening)
  Sender: FDA-Public Use
  Company Number: None

PATIENT
  Age: 53 Year
  Sex: Female
  Weight: 63.5036 kg

DRUGS (1)
  1. ZOCOR [Suspect]
     Indication: BLOOD CHOLESTEROL INCREASED
     Dosage: 40 MG 1
     Dates: start: 20060410, end: 20060522

REACTIONS (4)
  - BURSITIS [None]
  - CHROMATURIA [None]
  - MUSCLE ATROPHY [None]
  - MUSCULAR WEAKNESS [None]
